FAERS Safety Report 4514835-8 (Version None)
Quarter: 2004Q4

REPORT INFORMATION
  Report Type: 
  Country: None (occurrence: None)
  Receive Date: 20041201
  Receipt Date: 20041021
  Transmission Date: 20050328
  Serious: Yes (Hospitalization)
  Sender: FDA-Public Use
  Company Number: 200418120US

PATIENT
  Sex: Female
  Weight: 123.6 kg

DRUGS (5)
  1. KETEK [Suspect]
     Indication: PNEUMONIA
     Dosage: DOSE: 800 (X 5 DAYS)
     Route: 048
     Dates: start: 20041007, end: 20041007
  2. KETEK [Suspect]
     Indication: SINUSITIS BACTERIAL
     Dosage: DOSE: 800 (X 5 DAYS)
     Route: 048
     Dates: start: 20041007, end: 20041007
  3. HYDROCHLOROTHIAZIDE [Concomitant]
     Dosage: DOSE: UNK
  4. MESTINON [Concomitant]
  5. MAXZIDE [Concomitant]
     Indication: HYPERTENSION
     Dosage: DOSE: 37.5/25
     Route: 048

REACTIONS (16)
  - ASTHENIA [None]
  - BLOOD PRESSURE DIASTOLIC DECREASED [None]
  - BODY TEMPERATURE INCREASED [None]
  - COUGH [None]
  - DYSPNOEA [None]
  - FATIGUE [None]
  - HEART RATE INCREASED [None]
  - HYPOXIA [None]
  - MYASTHENIA GRAVIS CRISIS [None]
  - PLASMAPHERESIS [None]
  - RESPIRATORY DISTRESS [None]
  - RESPIRATORY FAILURE [None]
  - SINUSITIS [None]
  - URINARY TRACT INFECTION [None]
  - VISION BLURRED [None]
  - WHITE BLOOD CELL COUNT INCREASED [None]
